FAERS Safety Report 21533561 (Version 2)
Quarter: 2022Q4

REPORT INFORMATION
  Report Type: Spontaneous
  Country: KR (occurrence: KR)
  Receive Date: 20221101
  Receipt Date: 20221128
  Transmission Date: 20230112
  Serious: Yes (Death)
  Sender: FDA-Public Use
  Company Number: KR-MYLANLABS-2022M1118749

PATIENT
  Age: 58 Year
  Sex: Female
  Weight: 46.4 kg

DRUGS (5)
  1. LYRICA [Suspect]
     Active Substance: PREGABALIN
     Indication: Intervertebral disc disorder
     Dosage: 1 DOSAGE FORM, QD
     Route: 065
     Dates: start: 20171219, end: 20180103
  2. LYRICA [Suspect]
     Active Substance: PREGABALIN
     Indication: Myelopathy
  3. DULOXETINE HYDROCHLORIDE [Concomitant]
     Active Substance: DULOXETINE HYDROCHLORIDE
     Dosage: 1 DOSAGE FORM, QD
     Route: 065
     Dates: start: 20171207, end: 20180123
  4. KETOPROFEN [Concomitant]
     Active Substance: KETOPROFEN
     Dosage: 1 DOSAGE FORM
     Route: 065
  5. MAGNESIUM OXIDE [Concomitant]
     Active Substance: MAGNESIUM OXIDE
     Dosage: 1 DOSAGE FORM, QD
     Route: 065
     Dates: start: 20171226, end: 20180116

REACTIONS (1)
  - Toxic epidermal necrolysis [Fatal]

NARRATIVE: CASE EVENT DATE: 20180105
